FAERS Safety Report 8963127 (Version 4)
Quarter: 2013Q1

REPORT INFORMATION
  Report Type: Spontaneous
  Country: CH (occurrence: CH)
  Receive Date: 20121214
  Receipt Date: 20130102
  Transmission Date: 20140127
  Serious: Yes (Hospitalization, Other)
  Sender: FDA-Public Use
  Company Number: CH-JNJFOC-20121203818

PATIENT
  Sex: 0

DRUGS (5)
  1. DOXORUBICIN HYDROCHLORIDE (CAELYX) [Suspect]
     Indication: NEOPLASM
     Dosage: 5, 10, 20, 30, 40, 50, AND 60 MG/M2 ONCE EVERY 4 WEEKS FOR A MAXIMUM OF SIX CYCLES
     Route: 042
  2. ERBITUX [Suspect]
     Indication: NEOPLASM
     Dosage: 0.36 % OF THE 250 MG/ M2 DOSE
     Route: 042
  3. GLUCOSE [Concomitant]
     Dosage: 250 ML OF 5% GLUCOSE (500 ML FOR DOSES??}/-50 MG/M2) AND INFUSED THE DRUG FOR 60 MIN
     Route: 042
  4. TROPISETRON [Concomitant]
     Indication: PROPHYLAXIS
     Dosage: ON DAY 1
     Route: 048
  5. DEXAMETHASONE [Concomitant]
     Indication: PROPHYLAXIS
     Dosage: ON DAYS 1-5
     Route: 048

REACTIONS (19)
  - Sepsis [Unknown]
  - Febrile neutropenia [Unknown]
  - Neutropenia [Unknown]
  - Atrial fibrillation [Unknown]
  - Off label use [Unknown]
  - Fatigue [Unknown]
  - Oedema [Unknown]
  - Constipation [Unknown]
  - Thrombocytopenia [Unknown]
  - Pyrexia [Unknown]
  - Dyspnoea [Unknown]
  - Vomiting [Unknown]
  - Dry skin [Unknown]
  - Rash [Unknown]
  - Ascites [Unknown]
  - Decreased appetite [Unknown]
  - Headache [Unknown]
  - Chills [Unknown]
  - Nausea [Unknown]
